FAERS Safety Report 7248314-4 (Version None)
Quarter: 2011Q1

REPORT INFORMATION
  Report Type: 
  Country: None (occurrence: None)
  Receive Date: 20110127
  Receipt Date: 20110124
  Transmission Date: 20110831
  Serious: Yes (Hospitalization)
  Sender: FDA-Public Use
  Company Number: DK-PFIZER INC-2011016950

PATIENT
  Age: 1 Hour
  Sex: Female
  Weight: 3 kg

DRUGS (1)
  1. SERTRALINE HYDROCHLORIDE [Suspect]
     Dosage: 200 MG, 1X/DAY
     Route: 064
     Dates: start: 20090101

REACTIONS (2)
  - HYPOTONIA NEONATAL [None]
  - DRUG EXPOSURE DURING PREGNANCY [None]
